FAERS Safety Report 15837516 (Version 2)
Quarter: 2019Q1

REPORT INFORMATION
  Report Type: Report from Study
  Country: US (occurrence: US)
  Receive Date: 20190117
  Receipt Date: 20190121
  Transmission Date: 20190417
  Serious: No
  Sender: FDA-Public Use
  Company Number: US-SA-2019SA010119

PATIENT
  Age: 38 Year
  Sex: Female

DRUGS (1)
  1. INSULIN GLARGINE [Suspect]
     Active Substance: INSULIN GLARGINE
     Indication: DIABETES MELLITUS
     Dosage: 15AM UNITS 20 PM, BID

REACTIONS (7)
  - Product label issue [Unknown]
  - Injection site pain [Unknown]
  - Injection site scar [Unknown]
  - Device issue [Unknown]
  - Rubber sensitivity [Unknown]
  - Inappropriate schedule of product administration [Unknown]
  - Exposure during pregnancy [Unknown]

NARRATIVE: CASE EVENT DATE: 20190114
